FAERS Safety Report 7800201-6 (Version None)
Quarter: 2011Q4

REPORT INFORMATION
  Report Type: 
  Country: None (occurrence: None)
  Receive Date: 20111006
  Receipt Date: 20110929
  Transmission Date: 20120403
  Serious: Yes (Other)
  Sender: FDA-Public Use
  Company Number: US-ABBOTT-11P-163-0860200-00

PATIENT
  Sex: Male
  Weight: 80.812 kg

DRUGS (8)
  1. LOVASA [Concomitant]
     Indication: BLOOD CHOLESTEROL INCREASED
  2. VITAMIN D [Concomitant]
     Indication: PRODUCT USED FOR UNKNOWN INDICATION
     Dates: end: 20110917
  3. HUMIRA [Suspect]
  4. HUMIRA [Suspect]
     Dates: end: 20110801
  5. VIT D [Concomitant]
     Indication: PRODUCT USED FOR UNKNOWN INDICATION
     Dates: end: 20110917
  6. HUMIRA [Suspect]
  7. HUMIRA [Suspect]
     Dates: start: 20110801
  8. HUMIRA [Suspect]
     Indication: PSORIATIC ARTHROPATHY
     Dates: start: 20060101

REACTIONS (8)
  - HYPERTENSION [None]
  - ABDOMINAL PAIN [None]
  - DERMATITIS [None]
  - BLOOD URINE PRESENT [None]
  - OEDEMA PERIPHERAL [None]
  - BLOOD CHOLESTEROL INCREASED [None]
  - PAIN IN EXTREMITY [None]
  - NEPHROLITHIASIS [None]
